FAERS Safety Report 4729959-X (Version None)
Quarter: 2005Q3

REPORT INFORMATION
  Report Type: 
  Country: None (occurrence: None)
  Receive Date: 20050728
  Receipt Date: 20050718
  Transmission Date: 20060218
  Serious: Yes (Hospitalization, Other)
  Sender: FDA-Public Use
  Company Number: 2005_000042

PATIENT
  Age: 49 Year
  Sex: Male

DRUGS (4)
  1. DEPOCYT [Suspect]
     Dosage: 50 MG; EVERY OTHER WEEK; INTRATHECAL
     Route: 037
     Dates: start: 20050528, end: 20050610
  2. BETAMETHASONE [Concomitant]
  3. FOLFIRI [Concomitant]
  4. METHOTREXATE [Concomitant]

REACTIONS (5)
  - AMNESIA [None]
  - GRAND MAL CONVULSION [None]
  - MYOCLONUS [None]
  - PETIT MAL EPILEPSY [None]
  - POST PROCEDURAL COMPLICATION [None]
